FAERS Safety Report 8128477-9 (Version None)
Quarter: 2012Q1

REPORT INFORMATION
  Report Type: 
  Country: None (occurrence: None)
  Receive Date: 20120210
  Receipt Date: 20120202
  Transmission Date: 20120608
  Serious: Yes (Hospitalization, Disabling)
  Sender: FDA-Public Use
  Company Number: US-BAYER-2011-037977

PATIENT
  Age: 37 Year
  Sex: Female
  Weight: 68 kg

DRUGS (23)
  1. LEXAPRO [Concomitant]
     Indication: DEPRESSION
     Dosage: UNK
     Dates: start: 20020101
  2. CLONAZEPAM [Concomitant]
     Indication: ANXIETY
     Dosage: 1 MG, QD
     Dates: start: 20070901, end: 20110101
  3. CLONAZEPAM [Concomitant]
     Indication: AFFECTIVE DISORDER
  4. SLEEP AID [Concomitant]
     Dosage: UNK UNK, QD
  5. TAMIFLU [Concomitant]
     Dosage: 75 MG, UNK
     Dates: start: 20090416
  6. PRISTIQ [Concomitant]
     Indication: DEPRESSION
     Dosage: 200 MG, QD
     Dates: start: 20081027
  7. LEMON BALM [Concomitant]
     Dosage: UNK
     Dates: start: 20090517
  8. CALIFORNIA POPPY HERB EXTRACT [Concomitant]
     Dosage: UNK
     Dates: start: 20090517
  9. YAZ [Suspect]
     Indication: PREMENSTRUAL SYNDROME
     Dosage: UNK
     Dates: start: 20080214, end: 20090516
  10. FISH OIL [Concomitant]
     Dosage: UNK UNK, QD
  11. LAVENDER [Concomitant]
     Dosage: UNK
     Dates: start: 20090517
  12. LEVOTHYROXINE SODIUM [Concomitant]
     Indication: HYPOTHYROIDISM
     Dosage: 100 MCG/24HR, QD
     Dates: start: 20050701, end: 20110401
  13. L-THEAMINE EXTRAC [Concomitant]
  14. VALARIUM [Concomitant]
     Dosage: UNK
     Dates: start: 20090517
  15. ROOT EXTRACT [Concomitant]
  16. PASSION FLOWER [Concomitant]
     Dosage: UNK
     Dates: start: 20090517
  17. GABAPENTIN [Concomitant]
     Indication: AFFECTIVE DISORDER
  18. MULTI-VITAMIN [Concomitant]
     Dosage: UNK UNK, QD
  19. MAGNESIUM GLUCONATE [Concomitant]
     Dosage: UNK UNK, QD
  20. NEURONTIN [Concomitant]
     Dosage: UNK
     Dates: start: 20090516
  21. VYVANSE [Concomitant]
     Indication: DISTURBANCE IN ATTENTION
     Dosage: UNK
     Dates: start: 20071001
  22. HOPS STROBILE EXTRACT [Concomitant]
     Dosage: UNK
     Dates: start: 20090517
  23. GABAPENTIN [Concomitant]
     Indication: ANXIETY
     Dosage: 300 MG, UNK
     Dates: start: 20071001, end: 20110101

REACTIONS (10)
  - PAIN IN EXTREMITY [None]
  - ABASIA [None]
  - DYSPNOEA [None]
  - PAIN [None]
  - DEEP VEIN THROMBOSIS [None]
  - EMOTIONAL DISTRESS [None]
  - ANXIETY [None]
  - FATIGUE [None]
  - FEAR [None]
  - PULMONARY EMBOLISM [None]
